FAERS Safety Report 15582403 (Version 1)
Quarter: 2018Q4

REPORT INFORMATION
  Report Type: Spontaneous
  Country: SE (occurrence: SE)
  Receive Date: 20181102
  Receipt Date: 20181102
  Transmission Date: 20190205
  Serious: Yes (Hospitalization)
  Sender: FDA-Public Use
  Company Number: SE-TEVA-2018-SE-971022

PATIENT
  Age: 42 Year
  Sex: Male

DRUGS (6)
  1. METRONIDAZOLE. [Suspect]
     Active Substance: METRONIDAZOLE
     Indication: APPENDICITIS PERFORATED
     Route: 048
     Dates: start: 20011026, end: 20011101
  2. ELYZOL (METRONIDAZOLE) [Suspect]
     Active Substance: METRONIDAZOLE
     Indication: APPENDICITIS PERFORATED
     Route: 065
     Dates: start: 20011017, end: 20011026
  3. PANTOLOC /01263201/ [Concomitant]
     Active Substance: PANTOPRAZOLE SODIUM
  4. FRAGMINE [Concomitant]
     Active Substance: DALTEPARIN SODIUM
  5. CEFADROXIL. [Suspect]
     Active Substance: CEFADROXIL
     Indication: APPENDICITIS PERFORATED
     Route: 048
     Dates: start: 20011026, end: 20011101
  6. CLAFORAN [Suspect]
     Active Substance: CEFOTAXIME SODIUM
     Indication: APPENDICITIS PERFORATED
     Route: 042
     Dates: start: 20011017, end: 20011026

REACTIONS (3)
  - Gamma-glutamyltransferase increased [Not Recovered/Not Resolved]
  - Transaminases increased [Not Recovered/Not Resolved]
  - Blood alkaline phosphatase increased [Not Recovered/Not Resolved]
